FAERS Safety Report 11074309 (Version 1)
Quarter: 2015Q2

REPORT INFORMATION
  Report Type: Spontaneous
  Country: IT (occurrence: IT)
  Receive Date: 20150429
  Receipt Date: 20150429
  Transmission Date: 20150821
  Serious: Yes (Hospitalization)
  Sender: FDA-Public Use
  Company Number: IT-TEVA-557745ACC

PATIENT
  Age: 77 Year
  Sex: Male

DRUGS (7)
  1. CARDURA - 4 MG COMPRESSE A RILASCIO MODIFICATO [Concomitant]
     Indication: PRODUCT USED FOR UNKNOWN INDICATION
     Dosage: MODIFIED-RELEASE TABLET
  2. PARIET - COMPRESSE GASTRORESISTENTI 20 MG [Concomitant]
     Indication: PRODUCT USED FOR UNKNOWN INDICATION
     Dosage: GASTRO-RESISTANT TABLET
  3. ARANESP - 30 MCG SOLUZIONE INIETTABILE [Concomitant]
     Indication: PRODUCT USED FOR UNKNOWN INDICATION
  4. ALLOPURINOL. [Concomitant]
     Active Substance: ALLOPURINOL
     Indication: PRODUCT USED FOR UNKNOWN INDICATION
     Dosage: 300 MG
  5. CARDIOASPIRIN [Concomitant]
     Active Substance: ASPIRIN
     Indication: PRODUCT USED FOR UNKNOWN INDICATION
  6. LEVOFLOXACIN. [Suspect]
     Active Substance: LEVOFLOXACIN
     Indication: URINARY TRACT INFECTION
     Dosage: 250 MG
     Route: 048
     Dates: start: 20150410, end: 20150417
  7. HUMALOG [Concomitant]
     Active Substance: INSULIN LISPRO
     Indication: PRODUCT USED FOR UNKNOWN INDICATION

REACTIONS (4)
  - Drug ineffective [Recovering/Resolving]
  - Infection [Recovering/Resolving]
  - Urinary tract infection [Recovering/Resolving]
  - Sepsis [Unknown]

NARRATIVE: CASE EVENT DATE: 20150417
